FAERS Safety Report 6377631-5 (Version None)
Quarter: 2009Q3

REPORT INFORMATION
  Report Type: 
  Country: None (occurrence: None)
  Receive Date: 20090925
  Receipt Date: 20090917
  Transmission Date: 20100115
  Serious: Yes (Other)
  Sender: FDA-Public Use
  Company Number: FR-BAXTER-2009BH013038

PATIENT
  Age: 56 Year
  Sex: Female

DRUGS (6)
  1. ENDOXAN BAXTER [Suspect]
     Indication: DRUG USE FOR UNKNOWN INDICATION
     Route: 065
     Dates: start: 20090701, end: 20090701
  2. ETOPOSIDE [Suspect]
     Indication: METASTASES TO LIVER
     Route: 048
     Dates: start: 20090802, end: 20090815
  3. PHOSPHORUS [Concomitant]
     Indication: DRUG USE FOR UNKNOWN INDICATION
     Route: 065
  4. HEPATINE 4 CH [Concomitant]
     Indication: DRUG USE FOR UNKNOWN INDICATION
     Route: 065
  5. ESOMEPRAZOLE [Concomitant]
     Indication: DRUG USE FOR UNKNOWN INDICATION
     Route: 065
     Dates: start: 20090701, end: 20090701
  6. LETROZOLE [Concomitant]
     Indication: BREAST CANCER
     Route: 065

REACTIONS (1)
  - PRURITUS GENERALISED [None]
